FAERS Safety Report 7377627-0 (Version None)
Quarter: 2011Q1

REPORT INFORMATION
  Report Type: 
  Country: None (occurrence: None)
  Receive Date: 20110328
  Receipt Date: 20110316
  Transmission Date: 20110831
  Serious: Yes (Death)
  Sender: FDA-Public Use
  Company Number: US-SOLVAY-00211001743

PATIENT
  Age: 15783 Day
  Sex: Female
  Weight: 54.545 kg

DRUGS (13)
  1. LYRICA [Concomitant]
     Indication: FIBROMYALGIA
     Dosage: DAILY DOSE:  UNKNOWN
     Route: 065
  2. MARINOL [Suspect]
     Dosage: DAILY DOSE: 10 MILLIGRAM(S)
     Route: 048
     Dates: start: 20100924, end: 20101219
  3. OMEPRAZOLE [Concomitant]
     Indication: GASTROOESOPHAGEAL REFLUX DISEASE
     Dosage: DAILY DOSE:  UNKNOWN
     Route: 065
  4. MARINOL [Suspect]
     Dosage: DAILY DOSE: 20 MILLIGRAM(S)
     Route: 048
     Dates: start: 20101220
  5. DILAUDID [Interacting]
     Indication: COELIAC DISEASE
     Dosage: DAILY DOSE:  2 MG FOUR TIMES A DAY AS NEEDED FOR PAIN
     Route: 065
  6. FENTANYL-100 [Suspect]
     Indication: PRODUCT USED FOR UNKNOWN INDICATION
     Dosage: DAILY DOSE:  UNKNOWN
     Route: 065
  7. XANAX [Concomitant]
     Indication: PRODUCT USED FOR UNKNOWN INDICATION
     Dosage: DAILY DOSE:  UNKNOWN
     Route: 065
  8. ALBUTEROL [Concomitant]
     Indication: ASTHMA
     Dosage: DAILY DOSE:  UNKNOWN
     Route: 065
  9. ELAVIL [Concomitant]
     Indication: PRODUCT USED FOR UNKNOWN INDICATION
     Dosage: DAILY DOSE:  UNKNOWN
     Route: 065
  10. SOMA [Concomitant]
     Indication: PRODUCT USED FOR UNKNOWN INDICATION
     Dosage: DAILY DOSE:  UNKNOWN
     Route: 065
  11. SEROQUEL [Concomitant]
     Indication: BIPOLAR DISORDER
     Dosage: DAILY DOSE:  UNKNOWN
     Route: 065
  12. PERCOCET [Concomitant]
     Indication: PAIN
     Dosage: DAILY DOSE:  UNKNOWN
     Route: 065
  13. MARINOL [Suspect]
     Indication: FIBROMYALGIA
     Dosage: DAILY DOSE: 5 MILLIGRAM(S)
     Route: 048
     Dates: start: 20100917, end: 20100923

REACTIONS (2)
  - DEATH [None]
  - DRUG INTERACTION [None]
